FAERS Safety Report 8157967-8 (Version None)
Quarter: 2012Q1

REPORT INFORMATION
  Report Type: 
  Country: None (occurrence: None)
  Receive Date: 20120222
  Receipt Date: 20120221
  Transmission Date: 20120608
  Serious: Yes (Death, Hospitalization)
  Sender: FDA-Public Use
  Company Number: US-VERTEX PHARMACEUTICALS INC.-AE-2012-001541

PATIENT
  Age: 58 Year
  Sex: Female

DRUGS (10)
  1. INCIVEK [Suspect]
     Indication: HEPATITIS C
     Route: 048
     Dates: start: 20111122
  2. PEGASYS [Concomitant]
     Indication: HEPATITIS C
     Dates: start: 20111122
  3. ALDACTONE [Concomitant]
  4. KEPPRA [Concomitant]
  5. MAGNESIUM OXIDE [Concomitant]
  6. OXYCODONE HCL [Concomitant]
  7. LASIX [Concomitant]
  8. LACTULOSE [Concomitant]
  9. OMEPRAZOLE [Concomitant]
  10. RIBAVIRIN [Concomitant]
     Indication: HEPATITIS C
     Dates: start: 20111122

REACTIONS (3)
  - PULMONARY HYPERTENSION [None]
  - PERICARDIAL EFFUSION [None]
  - ANAEMIA [None]
